FAERS Safety Report 4492431-9 (Version None)
Quarter: 2004Q4

REPORT INFORMATION
  Report Type: 
  Country: None (occurrence: None)
  Receive Date: 20041103
  Receipt Date: 20041103
  Transmission Date: 20050328
  Serious: Yes (Hospitalization)
  Sender: FDA-Public Use
  Company Number: None

PATIENT
  Age: 13 Month
  Sex: Male
  Weight: 8.9 kg

DRUGS (1)
  1. FELBAMATE   600MG/5ML    WALLACE [Suspect]
     Indication: INFANTILE SPASMS
     Dosage: 360MG   TID   ORAL
     Route: 048
     Dates: start: 20040719, end: 20040722

REACTIONS (5)
  - CONVULSION [None]
  - HAEMATEMESIS [None]
  - MALLORY-WEISS SYNDROME [None]
  - NAUSEA [None]
  - VOMITING [None]
